FAERS Safety Report 8847508 (Version 2)
Quarter: 2012Q4

REPORT INFORMATION
  Report Type: 
  Country: US (occurrence: US)
  Receive Date: 20121018
  Receipt Date: 20121204
  Transmission Date: 20130627
  Serious: Yes (Other)
  Sender: FDA-Public Use
  Company Number: US-ELI_LILLY_AND_COMPANY-US201210004637

PATIENT
  Age: 67 Year
  Sex: Male
  Weight: 88.44 kg

DRUGS (3)
  1. CIALIS [Suspect]
     Indication: ERECTILE DYSFUNCTION
     Dosage: 10 mg, prn
     Route: 048
     Dates: start: 2007
  2. CIALIS [Suspect]
     Dosage: 20 mg, prn
     Route: 048
  3. LAMISIL [Concomitant]
     Dosage: UNK
     Route: 048
     Dates: start: 201208

REACTIONS (2)
  - Coronary artery occlusion [Recovered/Resolved]
  - Drug ineffective [Unknown]
